FAERS Safety Report 13320853 (Version 1)
Quarter: 2017Q1

REPORT INFORMATION
  Report Type: Spontaneous
  Country: US (occurrence: US)
  Receive Date: 20170310
  Receipt Date: 20170310
  Transmission Date: 20170428
  Serious: No
  Sender: FDA-Public Use
  Company Number: US-BRAEBURN PHARMACEUTICALS, INC.-2017BBN00001

PATIENT
  Age: 25 Year
  Sex: Male
  Weight: 70.3 kg

DRUGS (1)
  1. PROBUPHINE [Suspect]
     Active Substance: BUPRENORPHINE HYDROCHLORIDE
     Indication: DRUG DEPENDENCE
     Dosage: 74.2 MG, CONTINUOUS
     Route: 059
     Dates: start: 20161116

REACTIONS (4)
  - Chest pain [Not Recovered/Not Resolved]
  - Hypertension [Unknown]
  - Drug dependence [Not Recovered/Not Resolved]
  - Malaise [Unknown]

NARRATIVE: CASE EVENT DATE: 201701
